FAERS Safety Report 9400982 (Version 4)
Quarter: 2014Q1

REPORT INFORMATION
  Report Type: Spontaneous
  Country: US (occurrence: US)
  Receive Date: 20130715
  Receipt Date: 20140103
  Transmission Date: 20141002
  Serious: Yes (Death)
  Sender: FDA-Public Use
  Company Number: US-GLAXOSMITHKLINE-A1033154A

PATIENT
  Age: 63 Year
  Sex: Female
  Weight: 95.5 kg

DRUGS (1)
  1. AVANDIA [Suspect]
     Indication: DIABETES MELLITUS
     Dosage: 8MG PER DAY
     Route: 048
     Dates: start: 20000929, end: 20050822

REACTIONS (5)
  - Myocardial infarction [Fatal]
  - Coronary artery disease [Unknown]
  - Ischaemia [Unknown]
  - Angina unstable [Unknown]
  - Acute coronary syndrome [Unknown]
